FAERS Safety Report 6582438-X (Version None)
Quarter: 2010Q1

REPORT INFORMATION
  Report Type: 
  Country: None (occurrence: None)
  Receive Date: 20100216
  Receipt Date: 20100203
  Transmission Date: 20100710
  Serious: Yes (Other)
  Sender: FDA-Public Use
  Company Number: PHHY2010JP05187

PATIENT
  Age: 64 Year
  Sex: Female
  Weight: 67 kg

DRUGS (4)
  1. VOLTAREN [Suspect]
     Indication: BACK PAIN
     Route: 048
  2. LANSOPRAZOLE [Suspect]
     Route: 048
  3. ASPIRIN [Concomitant]
     Dosage: UNK
     Route: 048
  4. TICLOPIDINE HYDROCHLORIDE [Concomitant]
     Dosage: UNK
     Route: 048

REACTIONS (3)
  - COLITIS COLLAGENOUS [None]
  - DIARRHOEA [None]
  - OCCULT BLOOD POSITIVE [None]
